FAERS Safety Report 5908778-2 (Version None)
Quarter: 2008Q4

REPORT INFORMATION
  Report Type: 
  Country: None (occurrence: None)
  Receive Date: 20081006
  Receipt Date: 20080925
  Transmission Date: 20090506
  Serious: Yes (Hospitalization)
  Sender: FDA-Public Use
  Company Number: PHHY2008FR22749

PATIENT
  Age: 67 Year
  Sex: Female

DRUGS (4)
  1. GLEEVEC [Suspect]
     Indication: LEUKAEMIA
     Dosage: UNK
     Route: 048
     Dates: start: 20080606, end: 20080717
  2. ZYRTEC [Concomitant]
     Dosage: 1 DF, QD
     Route: 048
  3. HEXAQUINE [Concomitant]
     Dosage: 2 DF/DAY
  4. MAGNE B6 [Concomitant]
     Dosage: 2 DF/DAY
     Route: 048

REACTIONS (1)
  - AMAUROSIS FUGAX [None]
